FAERS Safety Report 10920764 (Version 1)
Quarter: 2015Q1

REPORT INFORMATION
  Report Type: Spontaneous
  Country: US (occurrence: None)
  Receive Date: 20150313
  Receipt Date: 20150313
  Transmission Date: 20150721
  Serious: Yes (Disabling)
  Sender: FDA-Public Use
  Company Number: None

PATIENT
  Age: 61 Year
  Sex: Female
  Weight: 83.92 kg

DRUGS (4)
  1. LEVOFLOXACIN 750 MG DR. REDDY^S LAB [Suspect]
     Active Substance: LEVOFLOXACIN
     Indication: SINUSITIS
     Route: 048
     Dates: start: 20150212, end: 20150213
  2. TRAMADOL 50 MG [Suspect]
     Active Substance: TRAMADOL
     Indication: MUSCLE SPASMS
     Dosage: EVERY 4-6 HOURS
     Route: 048
     Dates: start: 20150309, end: 20150310
  3. CYCLOBENZAPRINE [Concomitant]
     Active Substance: CYCLOBENZAPRINE
  4. ALEVE [Concomitant]
     Active Substance: NAPROXEN SODIUM

REACTIONS (9)
  - Pyrexia [None]
  - Hypoaesthesia [None]
  - Myalgia [None]
  - Pain in extremity [None]
  - Arthralgia [None]
  - Muscle spasms [None]
  - Nausea [None]
  - Dizziness [None]
  - Muscle strain [None]

NARRATIVE: CASE EVENT DATE: 20150213
